FAERS Safety Report 19757841 (Version 1)
Quarter: 2021Q3

REPORT INFORMATION
  Report Type: Report from Study
  Country: None (occurrence: BR)
  Receive Date: 20210828
  Receipt Date: 20210828
  Transmission Date: 20211014
  Serious: Yes (Other)
  Sender: FDA-Public Use
  Company Number: BR-ABBVIE-21K-020-4037198-00

PATIENT
  Age: 71 Year
  Sex: Male
  Weight: 79 kg

DRUGS (2)
  1. RINVOQ [Suspect]
     Active Substance: UPADACITINIB
     Indication: RHEUMATOID ARTHRITIS
     Route: 048
     Dates: start: 20210614
  2. COVID?19 VACCINE [Concomitant]
     Indication: COVID-19 IMMUNISATION

REACTIONS (5)
  - Thrombosis [Recovering/Resolving]
  - Peripheral swelling [Recovering/Resolving]
  - COVID-19 [Unknown]
  - Influenza like illness [Not Recovered/Not Resolved]
  - Venous occlusion [Recovering/Resolving]

NARRATIVE: CASE EVENT DATE: 20210719
